FAERS Safety Report 9665671 (Version 2)
Quarter: 2013Q4

REPORT INFORMATION
  Report Type: Spontaneous
  Country: US (occurrence: US)
  Receive Date: 20131104
  Receipt Date: 20131115
  Transmission Date: 20140711
  Serious: No
  Sender: FDA-Public Use
  Company Number: US-PFIZER INC-2013313024

PATIENT
  Age: 57 Year
  Sex: Female
  Weight: 82.99 kg

DRUGS (4)
  1. LYRICA [Suspect]
     Indication: FIBROMYALGIA
     Dosage: 100 MG, 2X/DAY
     Route: 048
     Dates: start: 2013
  2. LISINOPRIL [Concomitant]
     Dosage: UNK
  3. TRIAMTERENE/HYDROCHLOROTHIAZIDE [Concomitant]
     Dosage: UNK
  4. CITALOPRAM [Concomitant]
     Dosage: UNK

REACTIONS (1)
  - No adverse event [Unknown]
